FAERS Safety Report 5450310-4 (Version None)
Quarter: 2007Q3

REPORT INFORMATION
  Report Type: 
  Country: None (occurrence: None)
  Receive Date: 20070912
  Receipt Date: 20070830
  Transmission Date: 20080115
  Serious: Yes (Other)
  Sender: FDA-Public Use
  Company Number: DK-ASTRAZENECA-2007SE04826

PATIENT
  Age: 22795 Day
  Sex: Female

DRUGS (6)
  1. ATENOLOL [Suspect]
     Route: 048
  2. NORVASC [Interacting]
     Route: 048
  3. CYMBALTA [Interacting]
     Route: 048
     Dates: start: 20070531, end: 20070612
  4. ZOCOR [Interacting]
     Route: 048
  5. RISOLID [Concomitant]
     Indication: SEDATIVE THERAPY
     Route: 048
     Dates: start: 19870101
  6. ANTABUSE [Concomitant]
     Indication: ABSTAINS FROM ALCOHOL
     Route: 048
     Dates: start: 20061201

REACTIONS (5)
  - DRUG INTERACTION [None]
  - EYE PAIN [None]
  - GLAUCOMA [None]
  - PRURITUS GENERALISED [None]
  - VISUAL DISTURBANCE [None]
